FAERS Safety Report 6961397-1 (Version None)
Quarter: 2010Q3

REPORT INFORMATION
  Report Type: 
  Country: None (occurrence: None)
  Receive Date: 20100901
  Receipt Date: 20100819
  Transmission Date: 20110219
  Serious: Yes (Hospitalization, Other)
  Sender: FDA-Public Use
  Company Number: PHHY2010BR47925

PATIENT
  Age: 61 Year
  Sex: Female
  Weight: 68 kg

DRUGS (7)
  1. FORASEQ [Suspect]
     Indication: ASTHMA
     Dosage: 1 DF, BID
  2. FORASEQ [Suspect]
     Dosage: 1 DF, DAILY
  3. FORASEQ [Suspect]
     Dosage: BID
  4. RIVOTRIL [Concomitant]
     Indication: DEPRESSION
     Dosage: HALF A TABLET IN THE MORNING AND 1 TABLET AT NIGHT
     Route: 048
  5. PURAN T4 [Concomitant]
     Indication: HYPOTHYROIDISM
     Dosage: 1 DF, QD
     Route: 048
  6. PROPAFENONE HCL [Concomitant]
     Indication: ARRHYTHMIA
     Dosage: 1 DF, BID
     Route: 048
  7. CITALOPRAM HYDROBROMIDE [Concomitant]
     Indication: DEPRESSION
     Dosage: 1 DF, QD

REACTIONS (12)
  - ASTHMA [None]
  - CHEST PAIN [None]
  - DEVICE MALFUNCTION [None]
  - DYSPNOEA [None]
  - INCORRECT DOSE ADMINISTERED [None]
  - MALAISE [None]
  - MYOCARDIAL ISCHAEMIA [None]
  - NERVOUSNESS [None]
  - PALPITATIONS [None]
  - TREATMENT NONCOMPLIANCE [None]
  - TREMOR [None]
  - WRONG TECHNIQUE IN DRUG USAGE PROCESS [None]
